FAERS Safety Report 21331753 (Version 4)
Quarter: 2022Q4

REPORT INFORMATION
  Report Type: Report from Study
  Country: US (occurrence: US)
  Receive Date: 20220914
  Receipt Date: 20221117
  Transmission Date: 20230112
  Serious: Yes (Hospitalization)
  Sender: FDA-Public Use
  Company Number: US-BIOGEN-2022BI01154055

PATIENT
  Age: 58 Year
  Sex: Male
  Weight: 105.1 kg

DRUGS (27)
  1. TYSABRI [Suspect]
     Active Substance: NATALIZUMAB
     Indication: Multiple sclerosis
     Dosage: INFUSED OVER 1 HOUR
     Route: 050
     Dates: start: 20210930
  2. TYSABRI [Suspect]
     Active Substance: NATALIZUMAB
     Route: 050
  3. LIORESAL [Concomitant]
     Active Substance: BACLOFEN
     Indication: Product used for unknown indication
     Route: 050
  4. LIORESAL [Concomitant]
     Active Substance: BACLOFEN
     Route: 050
     Dates: start: 20220822
  5. VITAMIN D3 [Concomitant]
     Active Substance: CHOLECALCIFEROL
     Indication: Product used for unknown indication
     Dosage: 50 MCG = 2,000 UNITS
     Route: 050
  6. PRINZIDE [Concomitant]
     Active Substance: HYDROCHLOROTHIAZIDE\LISINOPRIL
     Indication: Product used for unknown indication
     Dosage: 20-12.5 MG PER TABLET
     Route: 050
  7. NAMENDA [Concomitant]
     Active Substance: MEMANTINE HYDROCHLORIDE
     Indication: Product used for unknown indication
     Route: 050
     Dates: start: 20220510
  8. PRAVACHOL [Concomitant]
     Active Substance: PRAVASTATIN SODIUM
     Indication: Hypercholesterolaemia
     Route: 050
     Dates: start: 20211025
  9. TYLENOL [Concomitant]
     Active Substance: ACETAMINOPHEN
     Indication: Pain
     Route: 050
     Dates: start: 20220821
  10. ZOVIRAX [Concomitant]
     Active Substance: ACYCLOVIR
     Indication: Herpes simplex encephalitis
     Dosage: ADMINISTER OVER 60 MINUTES, EVERY 8 HOURS INTERVAL
     Route: 050
     Dates: start: 20220822
  11. AMPICILLIN [Concomitant]
     Active Substance: AMPICILLIN
     Indication: Meningitis
     Dosage: ADMINISTER OVER 30 MINUTES, EVERY 4 HOURS (6 TIMES PER DAY)
     Route: 050
     Dates: start: 20220822
  12. MAXIPIME [Concomitant]
     Active Substance: CEFEPIME HYDROCHLORIDE
     Indication: Meningitis
     Dosage: ADMINISTER OVER 30 MINUTES, EVERY 8 HOURS INTERVAL
     Route: 050
     Dates: start: 20220822
  13. ROCEPHIN [Concomitant]
     Active Substance: CEFTRIAXONE SODIUM
     Indication: Sepsis
     Dosage: ADMINISTER OVER 30 MINUTES
     Route: 050
     Dates: start: 20220921
  14. MULTIHANCE [Concomitant]
     Active Substance: GADOBENATE DIMEGLUMINE
     Indication: Product used for unknown indication
     Dosage: ONCE PRN
     Route: 050
     Dates: start: 20220822
  15. HEPARIN [Concomitant]
     Active Substance: HEPARIN SODIUM
     Indication: Product used for unknown indication
     Dosage: 5000 UNITS
     Route: 050
     Dates: start: 20220823
  16. ADVIL [Concomitant]
     Active Substance: IBUPROFEN
     Indication: Product used for unknown indication
     Dosage: FOR 1 DOSE, GIVE WITH FOOD
     Route: 050
     Dates: start: 20220921
  17. OMNIPAQUE [Concomitant]
     Active Substance: IOHEXOL
     Indication: Computerised tomogram
     Dosage: 350 MG/ML?ONCE PRN
     Route: 050
     Dates: start: 20220821
  18. LIDOCAINE [Concomitant]
     Active Substance: LIDOCAINE
     Indication: Lumbar puncture
     Dosage: FOR 1 DOSE
     Route: 050
     Dates: start: 20220822
  19. ZOFRAN [Concomitant]
     Active Substance: ONDANSETRON HYDROCHLORIDE
     Indication: Nausea
     Dosage: EVERY 6 HOURS PRN
     Route: 050
     Dates: start: 20220822
  20. ZOFRAN [Concomitant]
     Active Substance: ONDANSETRON HYDROCHLORIDE
     Route: 050
     Dates: start: 20220822
  21. ZOFRAN [Concomitant]
     Active Substance: ONDANSETRON HYDROCHLORIDE
     Dosage: EVERY 6 HOURS
     Route: 050
     Dates: start: 20220822
  22. MIRALAX [Concomitant]
     Active Substance: POLYETHYLENE GLYCOL 3350
     Indication: Constipation
     Dosage: DAILY PRN
     Route: 050
     Dates: start: 20220822
  23. SENOKOT [Concomitant]
     Active Substance: SENNOSIDES
     Indication: Constipation
     Route: 050
     Dates: start: 20220822
  24. SODIUM CHLORIDE [Concomitant]
     Active Substance: SODIUM CHLORIDE
     Indication: Product used for unknown indication
     Dosage: ADMINISTER OVER 2 HOURS
     Route: 050
     Dates: start: 20220822
  25. SODIUM CHLORIDE [Concomitant]
     Active Substance: SODIUM CHLORIDE
     Dosage: INFUSION AT 100 ML/HR, INTRAVENOUS, CONTINUOUS
     Route: 050
     Dates: start: 20220822
  26. VANCOMYCIN [Concomitant]
     Active Substance: VANCOMYCIN
     Indication: Meningitis
     Dosage: ADMINISTER OVER 90 MINUTES, EVERY 8 HOURS INTERVAL
     Route: 050
     Dates: start: 20220822
  27. VANCOMYCIN [Concomitant]
     Active Substance: VANCOMYCIN
     Dosage: ADMINISTER OVER 120 MINUTES, ONCE
     Route: 050
     Dates: start: 20220822

REACTIONS (9)
  - Sepsis [Recovered/Resolved]
  - Cerebral infarction [Unknown]
  - Adrenal mass [Unknown]
  - Essential hypertension [Unknown]
  - Complex regional pain syndrome [Unknown]
  - Multiple sclerosis relapse [Unknown]
  - Impaired fasting glucose [Unknown]
  - Obesity [Unknown]
  - Pain [Unknown]

NARRATIVE: CASE EVENT DATE: 20220627
